FAERS Safety Report 10253226 (Version 1)
Quarter: 2014Q2

REPORT INFORMATION
  Report Type: Spontaneous
  Country: US (occurrence: US)
  Receive Date: 20140623
  Receipt Date: 20140623
  Transmission Date: 20141212
  Serious: No
  Sender: FDA-Public Use
  Company Number: US-ZOGENIX, INC.-2011ZX000448

PATIENT
  Sex: Female
  Weight: 45.4 kg

DRUGS (4)
  1. SUMAVEL DOSEPRO [Suspect]
     Indication: MIGRAINE
  2. CYMBALTA [Concomitant]
     Indication: DEPRESSION
     Route: 048
  3. BACTRIM [Concomitant]
     Indication: KIDNEY INFECTION
  4. BUSPAR [Concomitant]
     Indication: DEPRESSION
     Route: 048

REACTIONS (4)
  - Injection site pain [Recovered/Resolved]
  - Injection site urticaria [Recovered/Resolved]
  - Accidental exposure to product [Recovered/Resolved]
  - Device malfunction [Recovered/Resolved]
